FAERS Safety Report 10039541 (Version 1)
Quarter: 2014Q1

REPORT INFORMATION
  Report Type: Spontaneous
  Country: US (occurrence: US)
  Receive Date: 20140326
  Receipt Date: 20140326
  Transmission Date: 20141002
  Serious: No
  Sender: FDA-Public Use
  Company Number: US-GILEAD-2014-0097838

PATIENT
  Sex: Female

DRUGS (3)
  1. LETAIRIS [Suspect]
     Indication: PRODUCT USED FOR UNKNOWN INDICATION
     Dosage: 5 MG, QD
     Route: 065
     Dates: start: 20090202
  2. VELETRI [Concomitant]
  3. REVATIO [Concomitant]

REACTIONS (2)
  - Nausea [Not Recovered/Not Resolved]
  - Pain in jaw [Not Recovered/Not Resolved]
